FAERS Safety Report 22053588 (Version 2)
Quarter: 2023Q1

REPORT INFORMATION
  Report Type: Spontaneous
  Country: IT (occurrence: IT)
  Receive Date: 20230302
  Receipt Date: 20230331
  Transmission Date: 20230417
  Serious: Yes (Other)
  Sender: FDA-Public Use
  Company Number: IT-ABBVIE-4324072

PATIENT

DRUGS (1)
  1. UPADACITINIB [Suspect]
     Active Substance: UPADACITINIB
     Indication: Product used for unknown indication
     Route: 048

REACTIONS (8)
  - Pulmonary embolism [Unknown]
  - Abdominal pain upper [Unknown]
  - Herpes zoster [Unknown]
  - Drug ineffective [Unknown]
  - Drug intolerance [Unknown]
  - Stomatitis [Unknown]
  - Weight increased [Unknown]
  - Fungal infection [Unknown]
